FAERS Safety Report 10181070 (Version 2)
Quarter: 2014Q2

REPORT INFORMATION
  Report Type: Spontaneous
  Country: US (occurrence: US)
  Receive Date: 20140519
  Receipt Date: 20140519
  Transmission Date: 20141212
  Serious: No
  Sender: FDA-Public Use
  Company Number: US-AMGEN INC.-USASP2014015126

PATIENT
  Age: 63 Year
  Sex: Female
  Weight: 65.53 kg

DRUGS (2)
  1. PROLIA [Suspect]
     Indication: BONE LOSS
     Dosage: 60 MG, UNK
     Route: 065
     Dates: start: 201302
  2. ANASTROZOLE [Concomitant]
     Dosage: 1 MG, QD
     Route: 048
     Dates: start: 20130912

REACTIONS (3)
  - Paraesthesia [Recovered/Resolved]
  - Tooth disorder [Recovered/Resolved]
  - Anxiety [Unknown]
